FAERS Safety Report 23223019 (Version 2)
Quarter: 2023Q4

REPORT INFORMATION
  Report Type: Report from Study
  Country: US (occurrence: US)
  Receive Date: 20231123
  Receipt Date: 20231128
  Transmission Date: 20240109
  Serious: No
  Sender: FDA-Public Use
  Company Number: US-002147023-NVSC2023US246406

PATIENT
  Sex: Male

DRUGS (1)
  1. COSENTYX [Suspect]
     Active Substance: SECUKINUMAB
     Indication: Psoriasis
     Dosage: UNK
     Route: 065

REACTIONS (9)
  - Skin lesion [Unknown]
  - Pain of skin [Unknown]
  - Dermatitis psoriasiform [Unknown]
  - Skin exfoliation [Unknown]
  - Psoriasis [Unknown]
  - Insomnia [Unknown]
  - Swelling [Unknown]
  - Erythema [Unknown]
  - Skin plaque [Unknown]
